FAERS Safety Report 8847444 (Version 1)
Quarter: 2012Q4

REPORT INFORMATION
  Report Type: 
  Country: US (occurrence: US)
  Receive Date: 20121018
  Receipt Date: 20121018
  Transmission Date: 20130627
  Serious: Yes (Other)
  Sender: FDA-Public Use
  Company Number: US-VERTEX PHARMACEUTICAL INC.-2012-021494

PATIENT
  Age: 57 Year
  Sex: Male
  Weight: 87 kg

DRUGS (4)
  1. VX-950 [Suspect]
     Indication: HEPATITIS C
     Dosage: 750 mg, tid
     Route: 048
     Dates: start: 201208
  2. PEGASYS [Suspect]
     Indication: HEPATITIS C
     Dosage: 180 ?g, weekly
     Route: 058
     Dates: start: 201208
  3. RIBASPHERE [Suspect]
     Indication: HEPATITIS C
     Dosage: 600 mg, bid
     Route: 048
     Dates: start: 201208
  4. RIBASPHERE [Suspect]
     Dosage: 2 tab QAM + 1 tab QPM
     Route: 048

REACTIONS (2)
  - Anaemia [Unknown]
  - Fatigue [Unknown]
